FAERS Safety Report 8140861-6 (Version None)
Quarter: 2012Q1

REPORT INFORMATION
  Report Type: 
  Country: None (occurrence: None)
  Receive Date: 20120213
  Receipt Date: 20120201
  Transmission Date: 20120608
  Serious: Yes (Other)
  Sender: FDA-Public Use
  Company Number: 2012MA000509

PATIENT
  Sex: Female

DRUGS (6)
  1. IRINOTECAN HYDROCHLORIDE INJECTION [Concomitant]
  2. DOCETAXEL [Concomitant]
  3. CISPLATIN [Concomitant]
  4. PACLITAXEL [Suspect]
     Indication: GASTRIC CANCER
     Dosage: 80 MG/M**2;IV
     Route: 042
     Dates: start: 20080601
  5. PACLITAXEL [Suspect]
     Indication: METASTASES TO LIVER
     Dosage: 80 MG/M**2;IV
     Route: 042
     Dates: start: 20080601
  6. S-1 [Concomitant]

REACTIONS (3)
  - VOMITING [None]
  - DECREASED APPETITE [None]
  - HEPATIC CANCER METASTATIC [None]
